FAERS Safety Report 15007814 (Version 1)
Quarter: 2018Q2

REPORT INFORMATION
  Report Type: Spontaneous
  Country: US (occurrence: US)
  Receive Date: 20180613
  Receipt Date: 20180613
  Transmission Date: 20180711
  Serious: No
  Sender: FDA-Public Use
  Company Number: US-VIFOR (INTERNATIONAL) INC.-VIT-2018-05180

PATIENT
  Age: 69 Year
  Sex: Female

DRUGS (15)
  1. AMITRIPTYLINE [Concomitant]
     Active Substance: AMITRIPTYLINE
  2. METFORMIN [Concomitant]
     Active Substance: METFORMIN HYDROCHLORIDE
  3. PLAVIX [Concomitant]
     Active Substance: CLOPIDOGREL BISULFATE
  4. NORVASC [Concomitant]
     Active Substance: AMLODIPINE BESYLATE
  5. QUINAPRIL. [Concomitant]
     Active Substance: QUINAPRIL
  6. ESTRADIOL. [Concomitant]
     Active Substance: ESTRADIOL
  7. FUROSEMIDE. [Concomitant]
     Active Substance: FUROSEMIDE
  8. GABAPENTIN. [Concomitant]
     Active Substance: GABAPENTIN
  9. TOPROL XL [Concomitant]
     Active Substance: METOPROLOL SUCCINATE
  10. LIPITOR [Concomitant]
     Active Substance: ATORVASTATIN CALCIUM
  11. VELTASSA [Suspect]
     Active Substance: PATIROMER
     Indication: BLOOD POTASSIUM INCREASED
     Route: 048
     Dates: start: 201804, end: 20180523
  12. TRAZODONE [Concomitant]
     Active Substance: TRAZODONE HYDROCHLORIDE
  13. OMEPRAZOLE. [Concomitant]
     Active Substance: OMEPRAZOLE
  14. TIZANIDINE. [Concomitant]
     Active Substance: TIZANIDINE
  15. NORCO [Concomitant]
     Active Substance: ACETAMINOPHEN\HYDROCODONE BITARTRATE

REACTIONS (1)
  - Constipation [Not Recovered/Not Resolved]

NARRATIVE: CASE EVENT DATE: 201804
